FAERS Safety Report 9977801 (Version 1)
Quarter: 2014Q1

REPORT INFORMATION
  Report Type: Report from Study
  Country: US (occurrence: US)
  Receive Date: 20140306
  Receipt Date: 20140306
  Transmission Date: 20141002
  Serious: No
  Sender: FDA-Public Use
  Company Number: US-ABBVIE-13P-163-1161715-00

PATIENT
  Age: 62 Year
  Sex: Female

DRUGS (6)
  1. HUMIRA [Suspect]
     Indication: CROHN^S DISEASE
     Dates: start: 20131009, end: 20131009
  2. HUMIRA [Suspect]
     Dates: start: 20131010, end: 20131010
  3. HUMIRA [Suspect]
     Dates: start: 20131023, end: 20131023
  4. HUMIRA [Suspect]
  5. BUDESONIDE [Concomitant]
     Indication: PRODUCT USED FOR UNKNOWN INDICATION
  6. LISINOPRIL [Concomitant]
     Indication: HYPERTENSION

REACTIONS (13)
  - Incorrect product storage [Unknown]
  - Injection site pain [Not Recovered/Not Resolved]
  - Injection site reaction [Unknown]
  - Headache [Unknown]
  - Aura [Unknown]
  - Dizziness [Unknown]
  - Visual impairment [Unknown]
  - Retinal migraine [Unknown]
  - Malaise [Unknown]
  - Dizziness [Not Recovered/Not Resolved]
  - Nausea [Not Recovered/Not Resolved]
  - Confusional state [Recovered/Resolved]
  - Diarrhoea [Not Recovered/Not Resolved]
